FAERS Safety Report 20483645 (Version 2)
Quarter: 2022Q1

REPORT INFORMATION
  Report Type: Spontaneous
  Country: JP (occurrence: JP)
  Receive Date: 20220217
  Receipt Date: 20220310
  Transmission Date: 20220423
  Serious: Yes (Death, Other)
  Sender: FDA-Public Use
  Company Number: JP-CHUGAI-2022004157

PATIENT
  Age: 75 Year
  Sex: Male

DRUGS (10)
  1. GAZYVA [Suspect]
     Active Substance: OBINUTUZUMAB
     Indication: Follicular lymphoma
     Dosage: 1000MG/DAY
     Route: 042
     Dates: start: 20200101, end: 20200701
  2. BENDAMUSTINE HYDROCHLORIDE [Concomitant]
     Active Substance: BENDAMUSTINE HYDROCHLORIDE
     Indication: Follicular lymphoma
     Dosage: UNK
     Route: 041
  3. BENDAMUSTINE HYDROCHLORIDE [Concomitant]
     Active Substance: BENDAMUSTINE HYDROCHLORIDE
     Indication: Diffuse large B-cell lymphoma recurrent
     Dosage: UNK
     Route: 041
  4. RITUXAN [Concomitant]
     Active Substance: RITUXIMAB
     Indication: Diffuse large B-cell lymphoma recurrent
     Dosage: UNK
     Route: 041
  5. RITUXAN [Concomitant]
     Active Substance: RITUXIMAB
     Indication: Diffuse large B-cell lymphoma recurrent
     Dosage: UNK
     Route: 041
  6. CYCLOPHOSPHAMIDE [Concomitant]
     Active Substance: CYCLOPHOSPHAMIDE
     Indication: Diffuse large B-cell lymphoma recurrent
     Dosage: UNK
     Route: 041
  7. DOXORUBICIN HYDROCHLORIDE [Concomitant]
     Active Substance: DOXORUBICIN HYDROCHLORIDE
     Indication: Diffuse large B-cell lymphoma recurrent
     Dosage: UNK
     Route: 041
  8. VINCRISTINE SULFATE [Concomitant]
     Active Substance: VINCRISTINE SULFATE
     Indication: Diffuse large B-cell lymphoma recurrent
     Dosage: UNK
     Route: 041
  9. PREDNISOLONE [Concomitant]
     Active Substance: PREDNISOLONE
     Indication: Diffuse large B-cell lymphoma recurrent
     Dosage: UNK
     Route: 048
  10. POLIVY [Concomitant]
     Active Substance: POLATUZUMAB VEDOTIN-PIIQ
     Indication: Diffuse large B-cell lymphoma recurrent
     Dosage: UNK
     Route: 041

REACTIONS (5)
  - Diffuse large B-cell lymphoma recurrent [Recovered/Resolved]
  - Intestinal obstruction [Unknown]
  - Peritonitis [Unknown]
  - Intestinal perforation [Unknown]
  - Diffuse large B-cell lymphoma recurrent [Fatal]

NARRATIVE: CASE EVENT DATE: 20200801
